FAERS Safety Report 24992871 (Version 3)
Quarter: 2025Q2

REPORT INFORMATION
  Report Type: Spontaneous
  Country: US (occurrence: US)
  Receive Date: 20250221
  Receipt Date: 20250430
  Transmission Date: 20250717
  Serious: No
  Sender: ELI LILLY AND COMPANY
  Company Number: US-ELI_LILLY_AND_COMPANY-US202502014669

PATIENT
  Age: 59 Year
  Sex: Female

DRUGS (1)
  1. VERZENIO [Suspect]
     Active Substance: ABEMACICLIB
     Indication: Breast cancer female
     Dosage: 100 MG, BID
     Route: 048

REACTIONS (11)
  - Accident [Recovered/Resolved]
  - Hypoaesthesia [Recovered/Resolved]
  - White blood cell count increased [Unknown]
  - Weight decreased [Unknown]
  - Hot flush [Unknown]
  - Chills [Recovered/Resolved]
  - Peripheral swelling [Recovered/Resolved]
  - Rash [Unknown]
  - Diarrhoea [Recovered/Resolved]
  - Blood creatinine increased [Unknown]
  - Fatigue [Recovered/Resolved]
